FAERS Safety Report 4570051-5 (Version None)
Quarter: 2005Q1

REPORT INFORMATION
  Report Type: 
  Country: None (occurrence: None)
  Receive Date: 20050125
  Receipt Date: 20050125
  Transmission Date: 20050727
  Serious: Yes (Hospitalization, Other)
  Sender: FDA-Public Use
  Company Number: None

PATIENT
  Age: 48 Year
  Sex: Female
  Weight: 98 kg

DRUGS (6)
  1. VANCOMYCIN [Suspect]
     Indication: SEPSIS
  2. NORVASC [Concomitant]
  3. RENAGEL [Concomitant]
  4. LISINOPRIL [Concomitant]
  5. ALEVE [Concomitant]
  6. BICARBONATE [Concomitant]

REACTIONS (3)
  - DYSPHAGIA [None]
  - DYSPNOEA [None]
  - TOXIC EPIDERMAL NECROLYSIS [None]
